FAERS Safety Report 5957620-2 (Version None)
Quarter: 2008Q4

REPORT INFORMATION
  Report Type: 
  Country: None (occurrence: None)
  Receive Date: 20081119
  Receipt Date: 20081113
  Transmission Date: 20090506
  Serious: Yes (Other)
  Sender: FDA-Public Use
  Company Number: ES-BRISTOL-MYERS SQUIBB COMPANY-14405104

PATIENT
  Age: 35 Year
  Sex: Male

DRUGS (6)
  1. EFAVIRENZ [Suspect]
     Indication: HEPATITIS C
     Dates: start: 20020624, end: 20040423
  2. EFAVIRENZ [Suspect]
     Indication: HIV INFECTION
     Dates: start: 20020624, end: 20040423
  3. DIDANOSINE [Suspect]
     Indication: HIV INFECTION
     Dates: start: 20020624, end: 20040423
  4. DIDANOSINE [Suspect]
     Indication: HEPATITIS C
     Dates: start: 20020624, end: 20040423
  5. STAVUDINE [Suspect]
     Indication: HEPATITIS C
     Dates: start: 20020624, end: 20040423
  6. STAVUDINE [Suspect]
     Indication: HIV INFECTION
     Dates: start: 20020624, end: 20040423

REACTIONS (3)
  - ALANINE AMINOTRANSFERASE INCREASED [None]
  - ASPARTATE AMINOTRANSFERASE INCREASED [None]
  - DRUG RESISTANCE [None]
